FAERS Safety Report 19166943 (Version 3)
Quarter: 2024Q2

REPORT INFORMATION
  Report Type: Spontaneous
  Country: DE (occurrence: DE)
  Receive Date: 20210421
  Receipt Date: 20240621
  Transmission Date: 20240715
  Serious: Yes (Hospitalization, Other)
  Sender: FDA-Public Use
  Company Number: DE-ADRED-06367-01

PATIENT
  Age: 79 Year
  Sex: Male

DRUGS (14)
  1. SODIUM CHLORIDE [Suspect]
     Active Substance: SODIUM CHLORIDE
     Indication: Product used for unknown indication
     Dosage: (NACL 0,9%) DOSAGE TEXT: 1000 MG, INITIAL ADMINISTRATION ON 04022021
     Route: 042
     Dates: start: 20210204
  2. DEXAMETHASONE [Suspect]
     Active Substance: DEXAMETHASONE
     Indication: Product used for unknown indication
     Dosage: DOSAGE TEXT: 8 MG, INITIAL ADMINISTRATION ON 04022
     Route: 048
     Dates: start: 20210204
  3. GEMCITABINE [Suspect]
     Active Substance: GEMCITABINE
     Indication: Product used for unknown indication
     Dosage: DOSAGE TEXT: 1900 MG, INITIAL ADMINISTRATION ON 04022021
     Route: 042
     Dates: start: 20210204
  4. ABRAXANE [Suspect]
     Active Substance: PACLITAXEL
     Indication: Product used for unknown indication
     Dosage: DOSAGE TEXT: 230 MG, INITIAL ADMINISTRATION ON 04022021, PHARMACEUTICAL FORM (DOSAGE FORM): INTRAVEN
     Route: 042
     Dates: start: 20210204
  5. METAMIZOLE [Concomitant]
     Active Substance: METAMIZOLE
     Indication: Product used for unknown indication
     Dosage: DOSAGE TEXT: 500 MG AS NEEDED UP TO 4 X
     Route: 065
  6. TOUJEO [Concomitant]
     Active Substance: INSULIN GLARGINE
     Indication: Product used for unknown indication
     Dosage: DOSAGE TEXT: 18 IE, 0-0-1-0
     Route: 065
  7. TORSEMIDE [Concomitant]
     Active Substance: TORSEMIDE
     Indication: Product used for unknown indication
     Dosage: DOSAGE TEXT: 10 MG, 1-0-0-0
     Route: 065
  8. ONDANSETRON [Concomitant]
     Active Substance: ONDANSETRON
     Indication: Product used for unknown indication
     Dosage: DOSAGE TEXT: 8 MG AS NEEDED UP TO 2 X
     Route: 065
  9. METOPROLOL [Concomitant]
     Active Substance: METOPROLOL
     Indication: Product used for unknown indication
     Dosage: DOSAGE TEXT: 95 MG, 1-0-0.5-0
     Route: 065
  10. ASPIRIN [Concomitant]
     Active Substance: ASPIRIN
     Indication: Product used for unknown indication
     Dosage: (ASS 100), DOSAGE TEXT: 100 MG, 0-1-0-0
     Route: 065
  11. ATORVASTATIN [Concomitant]
     Active Substance: ATORVASTATIN
     Indication: Product used for unknown indication
     Dosage: DOSAGE TEXT: 40 MG, 0-0-1-0
     Route: 065
  12. METFORMIN [Concomitant]
     Active Substance: METFORMIN HYDROCHLORIDE
     Dosage: DOSAGE TEXT: DISCONTINUED
     Route: 065
  13. METOCLOPRAMIDE [Concomitant]
     Active Substance: METOCLOPRAMIDE
     Indication: Product used for unknown indication
     Dosage: DOSAGE TEXT: 10 MG AS NEEDED UP TO 3 X
     Route: 065
  14. CANDESARTAN [Concomitant]
     Active Substance: CANDESARTAN
     Indication: Product used for unknown indication
     Dosage: 32 MG (MILLIGRAM) ONCE DAILY, DOSAGE TEXT: 16 MG, 1-0-1-0
     Route: 065

REACTIONS (5)
  - Asthenia [Unknown]
  - General physical health deterioration [Unknown]
  - Jaundice [Unknown]
  - Immobile [Unknown]
  - Pyrexia [Unknown]
